FAERS Safety Report 6035059-1 (Version None)
Quarter: 2009Q1

REPORT INFORMATION
  Report Type: 
  Country: None (occurrence: None)
  Receive Date: 20090109
  Receipt Date: 20090105
  Transmission Date: 20090719
  Serious: Yes (Hospitalization)
  Sender: FDA-Public Use
  Company Number: 2008SP020105

PATIENT
  Age: 57 Year
  Sex: Female

DRUGS (4)
  1. PEG-INTRON [Suspect]
     Indication: HEPATIC CIRRHOSIS
     Dosage: 40 MCG QW SC
     Route: 058
     Dates: start: 20050523, end: 20060901
  2. REBETOL [Suspect]
     Indication: HEPATIC CIRRHOSIS
     Dosage: 600 MG QD PO
     Route: 048
     Dates: start: 20050523, end: 20060901
  3. PROGRAF [Concomitant]
  4. CELLCEPT [Concomitant]

REACTIONS (3)
  - ANTINUCLEAR ANTIBODY POSITIVE [None]
  - AUTOIMMUNE HEPATITIS [None]
  - POST PROCEDURAL COMPLICATION [None]
